FAERS Safety Report 23929457 (Version 1)
Quarter: 2024Q2

REPORT INFORMATION
  Report Type: Spontaneous
  Country: US (occurrence: US)
  Receive Date: 20240601
  Receipt Date: 20240601
  Transmission Date: 20240716
  Serious: No
  Sender: FDA-Public Use
  Company Number: US-RADIUS HEALTH, INC.-2023US005403

PATIENT
  Sex: Female

DRUGS (1)
  1. TYMLOS [Suspect]
     Active Substance: ABALOPARATIDE
     Indication: Senile osteoporosis
     Dosage: 80 MICROGRAM, QD
     Route: 058

REACTIONS (9)
  - Increased tendency to bruise [Unknown]
  - Condition aggravated [Unknown]
  - Respiratory tract infection [Unknown]
  - Abdominal pain upper [Unknown]
  - Dizziness [Unknown]
  - Malaise [Unknown]
  - Injection site swelling [Unknown]
  - Abdominal distension [Unknown]
  - Product dose omission issue [Unknown]
